FAERS Safety Report 5576361-7 (Version None)
Quarter: 2007Q4

REPORT INFORMATION
  Report Type: 
  Country: None (occurrence: None)
  Receive Date: 20071228
  Receipt Date: 20071226
  Transmission Date: 20080405
  Serious: Yes (Death, Hospitalization, Other)
  Sender: FDA-Public Use
  Company Number: US-BRISTOL-MYERS SQUIBB COMPANY-13390711

PATIENT
  Age: 80 Year
  Sex: Male

DRUGS (4)
  1. DASATINIB [Suspect]
     Indication: COLORECTAL CANCER METASTATIC
     Route: 048
     Dates: start: 20060515, end: 20060521
  2. PROCARDIA XL [Concomitant]
     Dates: start: 20000906
  3. RESTORIL [Concomitant]
     Dates: start: 20000906
  4. TYLENOL [Concomitant]
     Dates: start: 20000906

REACTIONS (3)
  - CEREBROVASCULAR ACCIDENT [None]
  - PLEURAL EFFUSION [None]
  - SUDDEN DEATH [None]
